FAERS Safety Report 11096738 (Version 1)
Quarter: 2015Q2

REPORT INFORMATION
  Report Type: Spontaneous
  Country: US (occurrence: US)
  Receive Date: 20150507
  Receipt Date: 20150507
  Transmission Date: 20150821
  Serious: No
  Sender: FDA-Public Use
  Company Number: US-LEO PHARMA-224869

PATIENT
  Sex: Female

DRUGS (1)
  1. DAIVOBET [Suspect]
     Active Substance: BETAMETHASONE DIPROPIONATE\CALCIPOTRIENE
     Indication: PSORIASIS
     Route: 061

REACTIONS (4)
  - Application site pain [Recovered/Resolved]
  - Application site discolouration [Not Recovered/Not Resolved]
  - Application site erosion [Recovered/Resolved]
  - Discomfort [Recovered/Resolved]
